FAERS Safety Report 5150581-8 (Version None)
Quarter: 2006Q4

REPORT INFORMATION
  Report Type: 
  Country: None (occurrence: None)
  Receive Date: 20061114
  Receipt Date: 20060724
  Transmission Date: 20070319
  Serious: Yes (Hospitalization, Other)
  Sender: FDA-Public Use
  Company Number: IT-ABBOTT-06P-083-0338782-00

PATIENT
  Sex: Female
  Weight: 66 kg

DRUGS (9)
  1. HUMIRA [Suspect]
     Indication: RHEUMATOID ARTHRITIS
     Route: 058
     Dates: start: 20050318, end: 20060626
  2. HUMIRA [Suspect]
     Dates: start: 20061025
  3. RABEPRAZOLE SODIUM [Concomitant]
     Indication: PROPHYLAXIS AGAINST GASTROINTESTINAL ULCER
  4. ACETYLSALICYLIC ACID SRT [Concomitant]
     Indication: ISCHAEMIC CARDIOMYOPATHY
  5. ENALAPRIL MALEATE [Concomitant]
     Indication: HYPERTENSION
  6. RAMIPRIL [Concomitant]
     Indication: HYPERTENSION
  7. LEKOVIT CA [Concomitant]
     Indication: OSTEOPOROSIS
     Dosage: 1000+800 UI
  8. COMMERCIAL HUMIRA [Concomitant]
     Indication: RHEUMATOID ARTHRITIS
     Route: 058
     Dates: start: 20040910
  9. ENOXAPARIN SODIUM [Concomitant]
     Indication: PROPHYLAXIS
     Dates: start: 20060701

REACTIONS (36)
  - AORTIC ARTERIOSCLEROSIS [None]
  - AORTIC VALVE INCOMPETENCE [None]
  - ARTERIAL DISORDER [None]
  - ATRIAL FIBRILLATION [None]
  - DIABETES MELLITUS [None]
  - DILATATION ATRIAL [None]
  - DYSTROPHIC CALCIFICATION [None]
  - ELECTROCARDIOGRAM QT SHORTENED [None]
  - ELECTROCARDIOGRAM REPOLARISATION ABNORMALITY [None]
  - GENERAL PHYSICAL HEALTH DETERIORATION [None]
  - HEPATIC STEATOSIS [None]
  - HEPATOMEGALY [None]
  - HYPERHIDROSIS [None]
  - INTERSTITIAL LUNG DISEASE [None]
  - KLEBSIELLA INFECTION [None]
  - LYMPHADENOPATHY [None]
  - MITRAL VALVE INCOMPETENCE [None]
  - MYOCARDIAL ISCHAEMIA [None]
  - OSTEOARTHRITIS [None]
  - PARVOVIRUS B19 SEROLOGY POSITIVE [None]
  - PLEURAL FIBROSIS [None]
  - PNEUMONIA [None]
  - PROTEINURIA [None]
  - PULMONARY HYPERTENSION [None]
  - QRS AXIS ABNORMAL [None]
  - RENAL CYST [None]
  - RETINAL DEGENERATION [None]
  - SCAR [None]
  - SINUS TACHYCARDIA [None]
  - SUPRAVENTRICULAR EXTRASYSTOLES [None]
  - THROMBOCYTOPENIA [None]
  - TRICUSPID VALVE INCOMPETENCE [None]
  - URINARY TRACT INFECTION [None]
  - URINARY TRACT INFECTION BACTERIAL [None]
  - URINE CALCIUM INCREASED [None]
  - VENTRICULAR HYPERTROPHY [None]
